FAERS Safety Report 8389815-5 (Version None)
Quarter: 2012Q2

REPORT INFORMATION
  Report Type: 
  Country: None (occurrence: None)
  Receive Date: 20120529
  Receipt Date: 20120525
  Transmission Date: 20120825
  Serious: Yes (Other)
  Sender: FDA-Public Use
  Company Number: PHHY2012CA009408

PATIENT
  Sex: Male

DRUGS (3)
  1. SPIRONOLACTONE [Concomitant]
     Dosage: UNK UKN, UNK
  2. DIGOXIN [Concomitant]
     Dosage: UNK UKN, UNK
  3. SANDOSTATIN LAR [Suspect]
     Indication: NEUROENDOCRINE TUMOUR
     Dosage: 30 MG, EVERY 4 WEEKS
     Route: 030
     Dates: start: 20120202

REACTIONS (3)
  - ANAL FISSURE [None]
  - HEART RATE IRREGULAR [None]
  - BLOOD PRESSURE INCREASED [None]
